FAERS Safety Report 10897508 (Version 3)
Quarter: 2017Q4

REPORT INFORMATION
  Report Type: Report from Study
  Country: None (occurrence: GB)
  Receive Date: 20150309
  Receipt Date: 20171128
  Transmission Date: 20180320
  Serious: Yes (Death, Hospitalization)
  Sender: FDA-Public Use
  Company Number: GB-ABBVIE-15K-167-1356840-00

PATIENT
  Age: 69 Year
  Sex: Female
  Weight: 69 kg

DRUGS (2)
  1. LEFLUNOMIDE. [Concomitant]
     Active Substance: LEFLUNOMIDE
     Indication: RHEUMATOID ARTHRITIS
  2. HUMIRA [Suspect]
     Active Substance: ADALIMUMAB
     Indication: RHEUMATOID ARTHRITIS
     Route: 058
     Dates: start: 20051115, end: 20120415

REACTIONS (6)
  - Lung neoplasm malignant [Fatal]
  - Respiratory failure [Fatal]
  - Ulcer [Fatal]
  - Wound [Fatal]
  - Empyema [Fatal]
  - Pneumonia [Fatal]

NARRATIVE: CASE EVENT DATE: 20121011
